FAERS Safety Report 8019705-9 (Version None)
Quarter: 2012Q1

REPORT INFORMATION
  Report Type: 
  Country: None (occurrence: None)
  Receive Date: 20120103
  Receipt Date: 20111227
  Transmission Date: 20120608
  Serious: Yes (Death)
  Sender: FDA-Public Use
  Company Number: US-GLAXOSMITHKLINE-A0959608A

PATIENT
  Age: 11 Year
  Sex: Male
  Weight: 36.4 kg

DRUGS (2)
  1. OXYCONTIN [Concomitant]
  2. VOTRIENT [Suspect]
     Indication: DESMOPLASTIC SMALL ROUND CELL TUMOUR
     Dosage: 400MGD PER DAY
     Route: 048
     Dates: start: 20110830

REACTIONS (2)
  - DEATH [None]
  - OFF LABEL USE [None]
